FAERS Safety Report 14279776 (Version 1)
Quarter: 2017Q4

REPORT INFORMATION
  Report Type: Report from Study
  Country: US (occurrence: US)
  Receive Date: 20171213
  Receipt Date: 20171213
  Transmission Date: 20180321
  Serious: Yes (Other)
  Sender: FDA-Public Use
  Company Number: US-UCBSA-2017049582

PATIENT
  Age: 40 Year
  Sex: Female

DRUGS (1)
  1. CERTOLIZUMAB PEGOL [Suspect]
     Active Substance: CERTOLIZUMAB PEGOL
     Indication: CROHN^S DISEASE
     Dosage: 400 MG, MONTHLY (QM)
     Dates: start: 20170515

REACTIONS (3)
  - Adverse drug reaction [Not Recovered/Not Resolved]
  - Colitis [Not Recovered/Not Resolved]
  - Blood disorder [Not Recovered/Not Resolved]

NARRATIVE: CASE EVENT DATE: 20170521
